FAERS Safety Report 18887681 (Version 1)
Quarter: 2021Q1

REPORT INFORMATION
  Report Type: Spontaneous
  Country: US (occurrence: US)
  Receive Date: 20210212
  Receipt Date: 20210212
  Transmission Date: 20210420
  Serious: Yes (Life-Threatening, Hospitalization, Other)
  Sender: FDA-Public Use
  Company Number: NVSC2021US032377

PATIENT
  Age: 6 Year
  Sex: Female
  Weight: 19.4 kg

DRUGS (5)
  1. KYMRIAH [Suspect]
     Active Substance: TISAGENLECLEUCEL
     Indication: B-CELL TYPE ACUTE LEUKAEMIA
     Dosage: UNK (SINGLE INFUSION)
     Route: 042
     Dates: start: 20201216
  2. VANCOMYCIN [Concomitant]
     Active Substance: VANCOMYCIN
     Indication: NEUTROPENIA
     Dosage: 15 MG/KG, Q8H
     Route: 042
     Dates: start: 20201211, end: 20201226
  3. CLINDAMYCIN. [Concomitant]
     Active Substance: CLINDAMYCIN
     Indication: NEUTROPENIA
     Dosage: 10 MG/KG, Q8H
     Route: 042
     Dates: start: 20201226, end: 20201229
  4. KEPPRA [Concomitant]
     Active Substance: LEVETIRACETAM
     Indication: PROPHYLAXIS
     Dosage: 5.6 ML, BID
     Route: 048
     Dates: start: 20200920
  5. CEFEPIME [Concomitant]
     Active Substance: CEFEPIME HYDROCHLORIDE
     Indication: NEUTROPENIA
     Dosage: 50 MG/KG, Q12H
     Route: 042
     Dates: start: 20201226, end: 20201229

REACTIONS (16)
  - International normalised ratio increased [Unknown]
  - Blood fibrinogen decreased [Recovering/Resolving]
  - Immune effector cell-associated neurotoxicity syndrome [Recovered/Resolved]
  - Irritability [Unknown]
  - C-reactive protein decreased [Unknown]
  - Serum ferritin increased [Unknown]
  - Hypotension [Unknown]
  - Cytokine release syndrome [Recovered/Resolved]
  - Neurotoxicity [Unknown]
  - Serum ferritin decreased [Unknown]
  - Pyrexia [Recovering/Resolving]
  - Fibrin degradation products increased [Unknown]
  - Dyspnoea [Unknown]
  - C-reactive protein increased [Unknown]
  - Prothrombin time prolonged [Unknown]
  - Activated partial thromboplastin time prolonged [Unknown]

NARRATIVE: CASE EVENT DATE: 20201217
